FAERS Safety Report 5417646-4 (Version None)
Quarter: 2007Q3

REPORT INFORMATION
  Report Type: 
  Country: None (occurrence: None)
  Receive Date: 20070718
  Receipt Date: 20060830
  Transmission Date: 20080115
  Serious: Yes (Hospitalization, Disabling)
  Sender: FDA-Public Use
  Company Number: 2006106065

PATIENT
  Age: 57 Year
  Sex: Male
  Weight: 131.0895 kg

DRUGS (1)
  1. CELEBREX [Suspect]
     Indication: ARTHRITIS
     Dosage: 800 MG (400 MG, 2 IN 1 D),
     Dates: start: 19991001

REACTIONS (1)
  - MYOCARDIAL INFARCTION [None]
